FAERS Safety Report 9138903 (Version 1)
Quarter: 2013Q1

REPORT INFORMATION
  Report Type: Spontaneous
  Country: US (occurrence: US)
  Receive Date: 20130305
  Receipt Date: 20130305
  Transmission Date: 20140127
  Serious: No
  Sender: FDA-Public Use
  Company Number: US-PFIZER INC-2013073388

PATIENT
  Age: 82 Year
  Sex: Male
  Weight: 74.83 kg

DRUGS (1)
  1. LATANOPROST [Suspect]
     Dosage: 1 GTT IN EACH EYE, 1X/DAY
     Route: 047

REACTIONS (1)
  - Drug ineffective [Unknown]
